FAERS Safety Report 16537661 (Version 1)
Quarter: 2019Q3

REPORT INFORMATION
  Report Type: Spontaneous
  Country: US (occurrence: US)
  Receive Date: 20190708
  Receipt Date: 20190708
  Transmission Date: 20191004
  Serious: No
  Sender: FDA-Public Use
  Company Number: US-LUPIN PHARMACEUTICALS INC.-2019-02995

PATIENT
  Sex: Female

DRUGS (1)
  1. SOLOSEC [Suspect]
     Active Substance: SECNIDAZOLE
     Indication: PRODUCT USED FOR UNKNOWN INDICATION
     Dosage: UNK
     Route: 065

REACTIONS (8)
  - Lip swelling [Unknown]
  - Pelvic pain [Unknown]
  - Malaise [Unknown]
  - Aggression [Unknown]
  - Hypersensitivity [Unknown]
  - Back pain [Unknown]
  - Diarrhoea [Unknown]
  - Depression [Unknown]
